FAERS Safety Report 6867022-2 (Version None)
Quarter: 2010Q3

REPORT INFORMATION
  Report Type: 
  Country: None (occurrence: None)
  Receive Date: 20100722
  Receipt Date: 20100722
  Transmission Date: 20110219
  Serious: No
  Sender: FDA-Public Use
  Company Number: None

PATIENT
  Age: 54 Year
  Sex: Female
  Weight: 62.5964 kg

DRUGS (1)
  1. LEVAQUIN [Suspect]
     Indication: SINUSITIS
     Dosage: 750 MG ONE A DAY
     Dates: start: 20100222, end: 20100301

REACTIONS (3)
  - JOINT EFFUSION [None]
  - PERIARTHRITIS [None]
  - ROTATOR CUFF SYNDROME [None]
